FAERS Safety Report 14572730 (Version 1)
Quarter: 2018Q1

REPORT INFORMATION
  Report Type: Spontaneous
  Country: US (occurrence: US)
  Receive Date: 20180226
  Receipt Date: 20180226
  Transmission Date: 20180509
  Serious: No
  Sender: FDA-Public Use
  Company Number: US-BAYER-2018-035830

PATIENT
  Sex: Female

DRUGS (1)
  1. CLOROTRIMETON [Suspect]
     Active Substance: CHLORPHENIRAMINE MALEATE

REACTIONS (2)
  - Anxiety [None]
  - Drug hypersensitivity [None]
